FAERS Safety Report 12980288 (Version 1)
Quarter: 2016Q4

REPORT INFORMATION
  Report Type: Spontaneous
  Country: US (occurrence: US)
  Receive Date: 20161128
  Receipt Date: 20161128
  Transmission Date: 20170207
  Serious: No
  Sender: FDA-Public Use
  Company Number: US-ELI_LILLY_AND_COMPANY-US201611007526

PATIENT
  Age: 47 Year
  Sex: Female
  Weight: 48.07 kg

DRUGS (4)
  1. HUMIRA [Suspect]
     Active Substance: ADALIMUMAB
     Indication: ANKYLOSING SPONDYLITIS
     Dosage: 40 MG, WEEKLY (1/W)
     Route: 058
     Dates: start: 201407
  2. TRAMADOL. [Concomitant]
     Active Substance: TRAMADOL
     Indication: ANKYLOSING SPONDYLITIS
     Dosage: UNK, UNKNOWN
     Route: 065
  3. CYMBALTA [Suspect]
     Active Substance: DULOXETINE HYDROCHLORIDE
     Indication: DEPRESSION
     Dosage: 40 MG, QD
     Route: 065
     Dates: end: 201511
  4. HUMIRA [Suspect]
     Active Substance: ADALIMUMAB
     Indication: OSTEOPOROSIS

REACTIONS (17)
  - Flushing [Recovered/Resolved]
  - Drug ineffective [Unknown]
  - Urinary tract infection [Recovering/Resolving]
  - Headache [Recovered/Resolved]
  - Fatigue [Unknown]
  - Neck pain [Not Recovered/Not Resolved]
  - Dyspepsia [Unknown]
  - Hypertension [Recovering/Resolving]
  - Osteopenia [Not Recovered/Not Resolved]
  - Increased tendency to bruise [Unknown]
  - Osteoporosis [Not Recovered/Not Resolved]
  - Musculoskeletal chest pain [Unknown]
  - Tremor [Recovered/Resolved]
  - Weight decreased [Not Recovered/Not Resolved]
  - Blood pressure decreased [Unknown]
  - Nausea [Unknown]
  - Asthenia [Recovered/Resolved]

NARRATIVE: CASE EVENT DATE: 2015
